FAERS Safety Report 16744905 (Version 1)
Quarter: 2019Q3

REPORT INFORMATION
  Report Type: Spontaneous
  Country: US (occurrence: US)
  Receive Date: 20190827
  Receipt Date: 20190827
  Transmission Date: 20191005
  Serious: No
  Sender: FDA-Public Use
  Company Number: US-GLENMARK PHARMACEUTICALS-2019GMK041939

PATIENT

DRUGS (3)
  1. TELMISARTAN TABLETS [Suspect]
     Active Substance: TELMISARTAN
     Dosage: UNK
  2. TELMISARTAN TABLETS [Suspect]
     Active Substance: TELMISARTAN
     Indication: HYPERTENSION
     Dosage: 40 MG, OD
     Route: 048
     Dates: start: 201902
  3. TELMISARTAN TABLETS [Suspect]
     Active Substance: TELMISARTAN
     Dosage: 80 MG, QD (TAKING 40 PLUS 40 MG DOSE)
     Route: 048
     Dates: start: 2019

REACTIONS (5)
  - Product availability issue [Unknown]
  - Drug ineffective [Unknown]
  - Product impurity [Unknown]
  - Malaise [Unknown]
  - Product blister packaging issue [Unknown]

NARRATIVE: CASE EVENT DATE: 2019
